FAERS Safety Report 20230375 (Version 3)
Quarter: 2022Q2

REPORT INFORMATION
  Report Type: Report from Study
  Country: BR (occurrence: BR)
  Receive Date: 20211227
  Receipt Date: 20220613
  Transmission Date: 20220721
  Serious: Yes (Death, Hospitalization, Other)
  Sender: FDA-Public Use
  Company Number: BR-JNJFOC-20211035446

PATIENT
  Age: 61 Year
  Sex: Female
  Weight: 64 kg

DRUGS (3)
  1. INFLIXIMAB [Suspect]
     Active Substance: INFLIXIMAB
     Indication: Crohn^s disease
     Dates: start: 20210511, end: 20210924
  2. SULFASALAZINE [Concomitant]
     Active Substance: SULFASALAZINE
  3. MESALAMINE [Concomitant]
     Active Substance: MESALAMINE

REACTIONS (6)
  - Sepsis [Fatal]
  - Thrombosis [Fatal]
  - Postoperative wound complication [Not Recovered/Not Resolved]
  - Limb injury [Not Recovered/Not Resolved]
  - Crohn^s disease [Not Recovered/Not Resolved]
  - Therapeutic product effect decreased [Unknown]

NARRATIVE: CASE EVENT DATE: 20210101
